FAERS Safety Report 5407370-6 (Version None)
Quarter: 2007Q3

REPORT INFORMATION
  Report Type: 
  Country: None (occurrence: None)
  Receive Date: 20070807
  Receipt Date: 20070731
  Transmission Date: 20080115
  Serious: Yes (Hospitalization)
  Sender: FDA-Public Use
  Company Number: FR-ELI_LILLY_AND_COMPANY-FR200703005817

PATIENT
  Age: 58 Year
  Sex: Male
  Weight: 95 kg

DRUGS (14)
  1. ALIMTA [Suspect]
     Indication: NON-SMALL CELL LUNG CANCER
     Dosage: 1000 MG, OTHER
     Route: 042
     Dates: start: 20060930
  2. FOLIC ACID [Concomitant]
     Indication: VITAMIN SUPPLEMENTATION
     Dosage: UNK, UNKNOWN
     Route: 065
  3. VITAMIN B-12 [Concomitant]
     Indication: VITAMIN SUPPLEMENTATION
     Dosage: UNK, UNKNOWN
     Route: 065
  4. DEXAMETHASONE 0.5MG TAB [Concomitant]
     Indication: PROPHYLAXIS
     Dosage: 8 MG, UNKNOWN
     Route: 065
  5. PREVISCAN [Concomitant]
     Dosage: UNK, UNKNOWN
     Route: 065
  6. IRBESARTAN [Concomitant]
     Dosage: UNK, UNKNOWN
     Route: 065
  7. CORDARONE [Concomitant]
     Dosage: UNK, UNKNOWN
     Route: 065
  8. BRONCHODUAL [Concomitant]
     Route: 065
  9. SKENAN [Concomitant]
     Dosage: UNK, UNKNOWN
     Route: 065
  10. ACTISKENAN [Concomitant]
     Dosage: UNK, UNKNOWN
     Route: 065
  11. DAFALGAN [Concomitant]
     Dosage: UNK, UNKNOWN
     Route: 065
  12. NEXIUM [Concomitant]
     Dosage: UNK, UNKNOWN
     Route: 065
  13. SOLU-MEDROL [Concomitant]
     Dosage: UNK, UNKNOWN
     Route: 065
  14. DIGOXIN [Concomitant]
     Route: 065

REACTIONS (10)
  - ANAEMIA [None]
  - ANOREXIA [None]
  - CHOLESTASIS [None]
  - DIARRHOEA [None]
  - DYSPNOEA [None]
  - GENERAL PHYSICAL HEALTH DETERIORATION [None]
  - NEUTROPENIA [None]
  - PANCREATIC ENZYME ABNORMALITY [None]
  - SEPSIS [None]
  - THROMBOCYTOPENIA [None]
